FAERS Safety Report 19657540 (Version 1)
Quarter: 2021Q3

REPORT INFORMATION
  Report Type: Not Available
  Country: None (occurrence: None)
  Receive Date: 20210804
  Receipt Date: 20210804
  Transmission Date: 20211014
  Serious: Yes (Other)
  Sender: FDA-Public Use
  Company Number: US-AKORN, INC.-170133

PATIENT
  Sex: Female

DRUGS (1)
  1. AK?FLUOR [Suspect]
     Active Substance: FLUORESCEIN SODIUM

REACTIONS (2)
  - Urticaria [Recovered/Resolved]
  - Vomiting [Recovered/Resolved]
